FAERS Safety Report 5238555-X (Version None)
Quarter: 2007Q1

REPORT INFORMATION
  Report Type: 
  Country: None (occurrence: None)
  Receive Date: 20070215
  Receipt Date: 20070205
  Transmission Date: 20070707
  Serious: Yes (Other)
  Sender: FDA-Public Use
  Company Number: CA-JNJFOC-20070106830

PATIENT
  Sex: Male
  Weight: 72.6 kg

DRUGS (5)
  1. RISPERDAL [Suspect]
  2. RISPERDAL [Suspect]
     Indication: SCHIZOPHRENIA
  3. ATIVAN [Concomitant]
     Indication: PSYCHOTIC DISORDER
  4. CIPRALEX [Concomitant]
     Indication: PSYCHOTIC DISORDER
  5. ESCITALOPRAM OXALATE [Concomitant]
     Indication: SOCIAL PHOBIA

REACTIONS (1)
  - IDIOPATHIC THROMBOCYTOPENIC PURPURA [None]
